FAERS Safety Report 5787939-X (Version None)
Quarter: 2008Q2

REPORT INFORMATION
  Report Type: 
  Country: None (occurrence: None)
  Receive Date: 20080625
  Receipt Date: 20080623
  Transmission Date: 20081010
  Serious: Yes (Disabling)
  Sender: FDA-Public Use
  Company Number: B0525398A

PATIENT
  Age: 66 Year
  Sex: Male

DRUGS (6)
  1. ZYBAN [Suspect]
     Dosage: 150MG PER DAY
     Route: 048
     Dates: start: 20080607, end: 20080609
  2. THEOPHYLLINE [Concomitant]
     Dosage: 200MG PER DAY
     Route: 048
  3. METHYLPREDNISOLONE [Concomitant]
     Dosage: 8MG PER DAY
     Route: 048
  4. ALBUTEROL [Concomitant]
     Route: 065
  5. MONTELUKAST SODIUM [Concomitant]
     Dosage: 10MG PER DAY
     Route: 048
  6. TIOTROPIUM BROMIDE [Concomitant]
     Dosage: 18MCG PER DAY
     Route: 055

REACTIONS (1)
  - DYSPNOEA AT REST [None]
